FAERS Safety Report 6379507-6 (Version None)
Quarter: 2009Q3

REPORT INFORMATION
  Report Type: 
  Country: None (occurrence: None)
  Receive Date: 20090928
  Receipt Date: 20090918
  Transmission Date: 20100115
  Serious: Yes (Hospitalization, Other)
  Sender: FDA-Public Use
  Company Number: GB-ABBOTT-09P-167-0596012-00

PATIENT
  Sex: Male

DRUGS (2)
  1. EPILIM SOLUTION [Suspect]
     Indication: CONVULSION
     Route: 048
  2. EPILIM CHRONO GRANULES [Suspect]
     Indication: CONVULSION
     Route: 048
     Dates: start: 20090826, end: 20090901

REACTIONS (5)
  - CONVULSION [None]
  - DRUG LEVEL BELOW THERAPEUTIC [None]
  - LETHARGY [None]
  - MEDICATION RESIDUE [None]
  - THERAPEUTIC RESPONSE DECREASED [None]
